FAERS Safety Report 7960301-7 (Version None)
Quarter: 2011Q4

REPORT INFORMATION
  Report Type: 
  Country: None (occurrence: None)
  Receive Date: 20111206
  Receipt Date: 20111202
  Transmission Date: 20120403
  Serious: Yes (Hospitalization)
  Sender: FDA-Public Use
  Company Number: PHHY2011CA102090

PATIENT
  Sex: Female

DRUGS (10)
  1. ZOLEDRONOC ACID [Suspect]
     Dosage: 5 MG / 100ML
     Route: 042
     Dates: start: 20111109
  2. CALCIUM [Concomitant]
  3. CRESTOR [Concomitant]
     Dosage: 5 MG, UNK
  4. NEXIUM [Concomitant]
     Dosage: 40 MG, QD
  5. ATENOLOL [Concomitant]
     Dosage: 75 MG, UNK
  6. RAMIPRIL [Concomitant]
     Dosage: 5 MG, UNK
  7. VITAMIN D [Concomitant]
     Dosage: 1000 IU/DAY
  8. ASACOL [Concomitant]
     Dosage: 800 MG, BID
  9. ZOLEDRONOC ACID [Suspect]
     Indication: OSTEOPOROSIS
     Dosage: 5 MG/100 ML
     Route: 042
     Dates: start: 20100609
  10. ASPIRIN [Concomitant]
     Dosage: 81 MG, UNK

REACTIONS (2)
  - COLITIS ULCERATIVE [None]
  - DEHYDRATION [None]
